FAERS Safety Report 24934045 (Version 1)
Quarter: 2025Q1

REPORT INFORMATION
  Report Type: Report from Study
  Country: US (occurrence: US)
  Receive Date: 20250206
  Receipt Date: 20250206
  Transmission Date: 20250408
  Serious: Yes (Other)
  Sender: EXELIXIS
  Company Number: US-EXELIXIS-CABO-24077373

PATIENT
  Age: 57 Year
  Sex: Male

DRUGS (14)
  1. CABOMETYX [Suspect]
     Active Substance: CABOZANTINIB S-MALATE
     Indication: Clear cell renal cell carcinoma
     Dosage: 40 MG, QD
     Dates: start: 20230831
  2. CABOMETYX [Suspect]
     Active Substance: CABOZANTINIB S-MALATE
     Dosage: 40 MG, QD
     Dates: end: 202312
  3. CABOMETYX [Suspect]
     Active Substance: CABOZANTINIB S-MALATE
     Dosage: 40 MG, QD
     Dates: start: 202401, end: 20240509
  4. NORVASC [Concomitant]
     Active Substance: AMLODIPINE BESYLATE
  5. PROVENTIL HFA [Concomitant]
     Active Substance: ALBUTEROL SULFATE
  6. MENTAX [Concomitant]
     Active Substance: BUTENAFINE HYDROCHLORIDE
  7. ZYRTEC [Concomitant]
     Active Substance: CETIRIZINE HYDROCHLORIDE
  8. DRISDOL [Concomitant]
     Active Substance: ERGOCALCIFEROL
  9. VISTARIL [Concomitant]
     Active Substance: HYDROXYZINE PAMOATE
  10. LEVOTHYROXINE [Concomitant]
     Active Substance: LEVOTHYROXINE
  11. COMPAZINE [Concomitant]
     Active Substance: PROCHLORPERAZINE MALEATE
  12. TRANSDERM SCOP [Concomitant]
     Active Substance: SCOPOLAMINE
  13. VENTOLIN HFA [Concomitant]
     Active Substance: ALBUTEROL SULFATE
  14. PRILOSEC [Concomitant]
     Active Substance: OMEPRAZOLE MAGNESIUM

REACTIONS (10)
  - Malignant neoplasm progression [Unknown]
  - Radiotherapy [Unknown]
  - Pruritus [Unknown]
  - Nausea [Recovered/Resolved]
  - Asthenia [Unknown]
  - Weight decreased [Unknown]
  - Tremor [Unknown]
  - Salivary gland mass [Unknown]
  - Cancer pain [Unknown]
  - Neurological symptom [Unknown]

NARRATIVE: CASE EVENT DATE: 20231121
